FAERS Safety Report 22040914 (Version 6)
Quarter: 2024Q2

REPORT INFORMATION
  Report Type: Spontaneous
  Country: US (occurrence: US)
  Receive Date: 20230227
  Receipt Date: 20240502
  Transmission Date: 20240716
  Serious: Yes (Hospitalization, Other)
  Sender: FDA-Public Use
  Company Number: US-PFIZER INC-PV202300037650

PATIENT
  Age: 80 Year
  Sex: Male
  Weight: 82.55 kg

DRUGS (4)
  1. VYNDAMAX [Suspect]
     Active Substance: TAFAMIDIS
     Indication: Cardiac amyloidosis
     Dosage: 61MG CAPSULE BY MOUTH ONCE A DAY, EVERY EVENING WITH WATER
     Route: 048
     Dates: start: 202302
  2. VYNDAMAX [Suspect]
     Active Substance: TAFAMIDIS
     Dosage: 61MG CAPSULE ONCE A DAY BY MOUTH
     Route: 048
     Dates: start: 202303
  3. TORSEMIDE [Concomitant]
     Active Substance: TORSEMIDE
     Dosage: 80 MG
  4. TORSEMIDE [Concomitant]
     Active Substance: TORSEMIDE
     Dosage: 160 MG
     Dates: start: 20231101

REACTIONS (9)
  - Blood pressure decreased [Not Recovered/Not Resolved]
  - Constipation [Unknown]
  - Fluid retention [Not Recovered/Not Resolved]
  - Hand fracture [Unknown]
  - Peripheral swelling [Recovering/Resolving]
  - Fall [Unknown]
  - Spinal operation [Recovering/Resolving]
  - COVID-19 [Not Recovered/Not Resolved]
  - Product dose omission issue [Unknown]

NARRATIVE: CASE EVENT DATE: 20230706
